FAERS Safety Report 11811366 (Version 8)
Quarter: 2016Q1

REPORT INFORMATION
  Report Type: Report from Study
  Country: CA (occurrence: CA)
  Receive Date: 20151208
  Receipt Date: 20160329
  Transmission Date: 20160525
  Serious: Yes (Death, Hospitalization, Other)
  Sender: FDA-Public Use
  Company Number: PHHY2015CA151320

PATIENT
  Age: 50 Year
  Sex: Female

DRUGS (3)
  1. SANDOSTATIN [Interacting]
     Active Substance: OCTREOTIDE ACETATE
     Indication: CARCINOID TUMOUR
     Dosage: TID
     Route: 058
     Dates: start: 20150709
  2. METHADONE [Interacting]
     Active Substance: METHADONE HYDROCHLORIDE
     Indication: PRODUCT USED FOR UNKNOWN INDICATION
     Route: 065
  3. SANDOSTATIN LAR DEPOT [Suspect]
     Active Substance: OCTREOTIDE ACETATE
     Indication: CARCINOID TUMOUR
     Dosage: 20 MG, QMO (ONCE A MONTH)
     Route: 030
     Dates: start: 20151209

REACTIONS (28)
  - Intestinal obstruction [Unknown]
  - Decreased appetite [Unknown]
  - Asthenia [Unknown]
  - Fall [Unknown]
  - Haemorrhage [Unknown]
  - Movement disorder [Unknown]
  - Peripheral swelling [Unknown]
  - Feeding disorder [Unknown]
  - Fatigue [Unknown]
  - Choking [Unknown]
  - Insomnia [Unknown]
  - Hypertension [Unknown]
  - Muscle spasms [Unknown]
  - Vomiting [Unknown]
  - Pain [Unknown]
  - Cardiac murmur [Unknown]
  - Renal impairment [Unknown]
  - Synovial cyst [Unknown]
  - Crying [Unknown]
  - Death [Fatal]
  - Suicidal ideation [Unknown]
  - Blood creatinine increased [Unknown]
  - Injection site pain [Unknown]
  - Heart rate decreased [Unknown]
  - Drug interaction [Unknown]
  - Malaise [Unknown]
  - Thrombophlebitis [Unknown]
  - Dysphagia [Unknown]

NARRATIVE: CASE EVENT DATE: 20160106
